FAERS Safety Report 4534402-X (Version None)
Quarter: 2004Q4

REPORT INFORMATION
  Report Type: 
  Country: None (occurrence: None)
  Receive Date: 20041214
  Receipt Date: 20040921
  Transmission Date: 20050328
  Serious: Yes (Hospitalization, Other)
  Sender: FDA-Public Use
  Company Number: 2004232463US

PATIENT
  Age: 79 Year
  Sex: Male

DRUGS (3)
  1. BEXTRA [Suspect]
     Indication: ARTHRALGIA
     Dosage: 20 MG, QD, ORAL
     Route: 048
     Dates: start: 20040806
  2. PLAVIX [Suspect]
     Dosage: 75 MG
     Dates: start: 20040101
  3. ASPIRIN [Suspect]
     Dosage: 81 MG, QD, ORAL
     Route: 048
     Dates: start: 20031101

REACTIONS (2)
  - ANAEMIA [None]
  - GASTROINTESTINAL ULCER HAEMORRHAGE [None]
